FAERS Safety Report 8243163-2 (Version None)
Quarter: 2012Q1

REPORT INFORMATION
  Report Type: 
  Country: None (occurrence: None)
  Receive Date: 20120314
  Receipt Date: 20100901
  Transmission Date: 20120608
  Serious: Yes (Other)
  Sender: FDA-Public Use
  Company Number: PHHY2010US58042

PATIENT
  Age: 23 Year
  Sex: Male
  Weight: 78 kg

DRUGS (1)
  1. FANAPT [Suspect]
     Indication: PSYCHOTIC DISORDER
     Dosage: 4 MG, BID, ORAL
     Route: 048
     Dates: start: 20100805, end: 20100810

REACTIONS (1)
  - CONVULSION [None]
